FAERS Safety Report 5608745-2 (Version None)
Quarter: 2008Q1

REPORT INFORMATION
  Report Type: 
  Country: None (occurrence: None)
  Receive Date: 20080129
  Receipt Date: 20080129
  Transmission Date: 20080703
  Serious: Yes (Life-Threatening, Hospitalization)
  Sender: FDA-Public Use
  Company Number: None

PATIENT
  Sex: Female
  Weight: 76.2043 kg

DRUGS (3)
  1. REMICADE [Suspect]
     Indication: RHEUMATOID ARTHRITIS
     Dosage: 3 VIALS 1. INITIAL ONE 2. 2 WEEKS 3 5 WKS LATER I.V.
     Route: 042
     Dates: start: 20070925
  2. REMICADE [Suspect]
     Indication: RHEUMATOID ARTHRITIS
     Dosage: 3 VIALS 1. INITIAL ONE 2. 2 WEEKS 3 5 WKS LATER I.V.
     Route: 042
     Dates: start: 20071011
  3. REMICADE [Suspect]
     Indication: RHEUMATOID ARTHRITIS
     Dosage: 3 VIALS 1. INITIAL ONE 2. 2 WEEKS 3 5 WKS LATER I.V.
     Route: 042
     Dates: start: 20071113

REACTIONS (9)
  - BLOOD PRESSURE DECREASED [None]
  - BLOOD PRESSURE INCREASED [None]
  - CHEST PAIN [None]
  - CHILLS [None]
  - MALAISE [None]
  - OVERDOSE [None]
  - PALPITATIONS [None]
  - PRESYNCOPE [None]
  - PYREXIA [None]
